FAERS Safety Report 8803995 (Version 1)
Quarter: 2012Q4

REPORT INFORMATION
  Report Type: 
  Country: US (occurrence: US)
  Receive Date: 20120924
  Receipt Date: 20120924
  Transmission Date: 20130627
  Serious: No
  Sender: FDA-Public Use
  Company Number: US-PFIZER INC-2012233352

PATIENT
  Sex: Female

DRUGS (3)
  1. LIPITOR [Suspect]
     Dosage: UNK
  2. CELEBREX [Suspect]
     Dosage: UNK
  3. LYRICA [Suspect]
     Dosage: UNK

REACTIONS (2)
  - Cough [Unknown]
  - Hypersensitivity [Unknown]
